FAERS Safety Report 20742226 (Version 1)
Quarter: 2022Q2

REPORT INFORMATION
  Report Type: Report from Study
  Country: CA (occurrence: CA)
  Receive Date: 20220423
  Receipt Date: 20220423
  Transmission Date: 20220721
  Serious: Yes (Other)
  Sender: FDA-Public Use
  Company Number: CA-ABBVIE-22K-028-4367957-00

PATIENT
  Age: 67 Year
  Sex: Male

DRUGS (12)
  1. SKYRIZI [Suspect]
     Active Substance: RISANKIZUMAB-RZAA
     Indication: Psoriasis
     Route: 058
     Dates: start: 20201015, end: 20201115
  2. SKYRIZI [Suspect]
     Active Substance: RISANKIZUMAB-RZAA
     Route: 058
     Dates: start: 20201115
  3. ROSUVASTATIN [Concomitant]
     Active Substance: ROSUVASTATIN
     Indication: Hyperlipidaemia
     Route: 048
     Dates: start: 2015
  4. IRON\VITAMINS [Concomitant]
     Active Substance: IRON\VITAMINS
     Indication: Supplementation therapy
     Route: 048
     Dates: start: 2018
  5. ALEVE [Concomitant]
     Active Substance: NAPROXEN SODIUM
     Indication: Osteoarthritis
     Dosage: AS NEEDED
     Route: 048
     Dates: start: 20201022, end: 20201116
  6. MODERNA COVID-19 VACCINE [Concomitant]
     Active Substance: ELASOMERAN
     Indication: COVID-19 immunisation
     Route: 030
     Dates: start: 20211014, end: 20211014
  7. FENTANYL [Concomitant]
     Active Substance: FENTANYL
     Indication: Knee arthroplasty
     Dates: start: 20220311, end: 20220311
  8. MORPHINE SULFATE [Concomitant]
     Active Substance: MORPHINE SULFATE
     Indication: Knee arthroplasty
     Dates: start: 20220311, end: 20220311
  9. BUPIVACAINE [Concomitant]
     Active Substance: BUPIVACAINE
     Indication: Product used for unknown indication
     Dates: start: 20220311, end: 20220311
  10. ANCEF [Concomitant]
     Active Substance: CEFAZOLIN SODIUM
     Indication: Knee arthroplasty
     Dates: start: 20220311
  11. TRANEXAMIC ACID [Concomitant]
     Active Substance: TRANEXAMIC ACID
     Indication: Knee arthroplasty
     Route: 042
     Dates: start: 20220311, end: 20220311
  12. ZOFRAN [Concomitant]
     Active Substance: ONDANSETRON HYDROCHLORIDE
     Indication: Knee arthroplasty
     Route: 042
     Dates: start: 20220311, end: 20220311

REACTIONS (2)
  - Knee arthroplasty [Unknown]
  - Procedural pain [Not Recovered/Not Resolved]

NARRATIVE: CASE EVENT DATE: 20220312
